FAERS Safety Report 11519591 (Version 1)
Quarter: 2015Q3

REPORT INFORMATION
  Report Type: Spontaneous
  Country: US (occurrence: US)
  Receive Date: 20150918
  Receipt Date: 20150918
  Transmission Date: 20151125
  Serious: No
  Sender: FDA-Public Use
  Company Number: US-GLENMARK PHARMACEUTICALS INC, USA.-2014GMK011483

PATIENT
  Age: 36 Year
  Sex: Female

DRUGS (13)
  1. CYMBALTA [Concomitant]
     Active Substance: DULOXETINE HYDROCHLORIDE
     Dosage: 60 MG, OD
  2. ATENOLOL. [Concomitant]
     Active Substance: ATENOLOL
     Dosage: 50 MG, OD
  3. LUPRON [Suspect]
     Active Substance: LEUPROLIDE ACETATE
  4. VITAMIN D [Concomitant]
     Active Substance: CHOLECALCIFEROL
     Dosage: 5000 IU, 1 IN 2 WEEK
  5. XANAX [Concomitant]
     Active Substance: ALPRAZOLAM
     Dosage: 1 MG, HS
  6. NASONEX [Concomitant]
     Active Substance: MOMETASONE FUROATE
     Dosage: UNK
  7. LUPRON [Suspect]
     Active Substance: LEUPROLIDE ACETATE
  8. MINOCYCLINE [Concomitant]
     Active Substance: MINOCYCLINE\MINOCYCLINE HYDROCHLORIDE
     Dosage: 100 MG, BID
  9. D3 [Concomitant]
     Active Substance: 25-HYDROXYCHOLECALCIFEROL, 5-TRANS-
     Dosage: 1000 MG, OD
  10. CLARITIN [Concomitant]
     Active Substance: LORATADINE
     Dosage: UNK, PRN
  11. NORETHINDRONE ACETATE TABLETS [Suspect]
     Active Substance: NORETHINDRONE ACETATE
     Dosage: 5 MG, OD
     Dates: start: 201401
  12. LUPRON [Suspect]
     Active Substance: LEUPROLIDE ACETATE
     Dosage: 11.25 MG / 3 MONTH
     Dates: start: 201301
  13. MAGNESIUM [Concomitant]
     Active Substance: MAGNESIUM
     Dosage: 250 MG, OD

REACTIONS (6)
  - Weight increased [Unknown]
  - Migraine [Unknown]
  - Sinusitis [Unknown]
  - Uterine spasm [Unknown]
  - Food craving [Unknown]
  - Menorrhagia [Unknown]

NARRATIVE: CASE EVENT DATE: 201301
